FAERS Safety Report 9433486 (Version 2)
Quarter: 2013Q3

REPORT INFORMATION
  Report Type: Spontaneous
  Country: GB (occurrence: GB)
  Receive Date: 20130731
  Receipt Date: 20130821
  Transmission Date: 20140515
  Serious: Yes (Other)
  Sender: FDA-Public Use
  Company Number: ALCN2013GB000697

PATIENT
  Age: 52 Year
  Sex: Female
  Weight: 70 kg

DRUGS (4)
  1. ALOMIDE [Suspect]
     Indication: CONJUNCTIVITIS ALLERGIC
     Dosage: 1 DF, QID
     Route: 047
     Dates: start: 20130702, end: 20130702
  2. ACRIVASTINE [Concomitant]
     Indication: SEASONAL ALLERGY
     Dosage: 8 MG, UNK
     Route: 048
     Dates: start: 20130501
  3. LEVOTHYROXINE [Concomitant]
     Indication: HYPOTHYROIDISM
     Dosage: 175 UNK, UNK
     Route: 048
  4. SODIUM CROMOGLICATE [Concomitant]
     Indication: SEASONAL ALLERGY
     Dosage: 3 %, UNK
     Route: 047
     Dates: start: 20130501, end: 20130702

REACTIONS (4)
  - Palpitations [Recovering/Resolving]
  - Chest discomfort [Recovered/Resolved]
  - Eyelid oedema [Not Recovered/Not Resolved]
  - Eye pain [Not Recovered/Not Resolved]
